FAERS Safety Report 5691172-X (Version None)
Quarter: 2008Q2

REPORT INFORMATION
  Report Type: 
  Country: None (occurrence: None)
  Receive Date: 20080401
  Receipt Date: 20080401
  Transmission Date: 20081010
  Serious: Yes (Hospitalization, Other)
  Sender: FDA-Public Use
  Company Number: None

PATIENT
  Age: 78 Year
  Sex: Female
  Weight: 49.8957 kg

DRUGS (1)
  1. EXELON [Suspect]
     Indication: DEMENTIA ALZHEIMER'S TYPE
     Dosage: ONE PATCH EVERY 24 HOURS TRANSDERMAL
     Route: 062
     Dates: start: 20080220, end: 20080317

REACTIONS (12)
  - ACTIVITIES OF DAILY LIVING IMPAIRED [None]
  - ANOREXIA [None]
  - BLOOD GLUCOSE INCREASED [None]
  - BLOOD PRESSURE INCREASED [None]
  - CATATONIA [None]
  - DYSSTASIA [None]
  - MASTICATION DISORDER [None]
  - SPEECH DISORDER [None]
  - TREMOR [None]
  - URINARY RETENTION [None]
  - URINARY SEDIMENT PRESENT [None]
  - WEIGHT DECREASED [None]
